FAERS Safety Report 25629887 (Version 1)
Quarter: 2025Q3

REPORT INFORMATION
  Report Type: Spontaneous
  Country: US (occurrence: US)
  Receive Date: 20250731
  Receipt Date: 20250731
  Transmission Date: 20251021
  Serious: Yes (Other)
  Sender: ABBVIE
  Company Number: US-ABBVIE-6391435

PATIENT
  Sex: Female

DRUGS (1)
  1. BOTOX COSMETIC [Suspect]
     Active Substance: ONABOTULINUMTOXINA
     Indication: Product used for unknown indication
     Route: 065

REACTIONS (10)
  - Seizure [Not Recovered/Not Resolved]
  - Adverse event [Unknown]
  - Palpitations [Unknown]
  - Panic attack [Unknown]
  - Neurological symptom [Unknown]
  - Cognitive disorder [Unknown]
  - Pseudostroke [Unknown]
  - Fatigue [Unknown]
  - Muscular weakness [Unknown]
  - Monoplegia [Unknown]
